FAERS Safety Report 25177492 (Version 3)
Quarter: 2025Q2

REPORT INFORMATION
  Report Type: Spontaneous
  Country: US (occurrence: US)
  Receive Date: 20250409
  Receipt Date: 20250507
  Transmission Date: 20250717
  Serious: No
  Sender: Unknown Manufacturer
  Company Number: US-862174955-ML2025-01678

PATIENT
  Age: 74 Year
  Sex: Female
  Weight: 77 kg

DRUGS (9)
  1. TRAVOPROST [Suspect]
     Active Substance: TRAVOPROST
     Indication: Intraocular pressure increased
     Route: 047
     Dates: start: 20250210
  2. METFORMIN [Concomitant]
     Active Substance: METFORMIN HYDROCHLORIDE
     Indication: Product used for unknown indication
     Dosage: METFORMIN 500 MG THREE TIMES A DAY,
  3. METOPROLOL [Concomitant]
     Active Substance: METOPROLOL
     Indication: Product used for unknown indication
     Dosage: METOPROLOL 50 MG TWICE A DAY
  4. GLIMEPIRIDE [Concomitant]
     Active Substance: GLIMEPIRIDE
     Indication: Product used for unknown indication
     Dosage: GLIMEPIRIDE 4 MG ONCE A DAY
  5. HYDROCHLOROTHIAZIDE\LOSARTAN POTASSIUM [Concomitant]
     Active Substance: HYDROCHLOROTHIAZIDE\LOSARTAN POTASSIUM
     Indication: Product used for unknown indication
     Dosage: LOSARTAN/HYDROCHLOROTHIAZIDE 50/12.5 MG ONCE A DAY
  6. ASPIRIN [Concomitant]
     Active Substance: ASPIRIN
     Indication: Product used for unknown indication
     Dosage: ASPIRIN 81 MG MICRO DOSE ONCE A DAY
  7. ROSUVASTATIN [Concomitant]
     Active Substance: ROSUVASTATIN
     Indication: Product used for unknown indication
     Dosage: ROSUVASTATIN 5 MG ONCE A DAY
  8. Clonazepam 0.25 mg [Concomitant]
     Indication: Product used for unknown indication
     Dosage: CLONAZEPAM 0.25 MG ONCE A DAY
  9. Mounjaro 2.5 mg injection [Concomitant]
     Indication: Product used for unknown indication

REACTIONS (3)
  - Extra dose administered [Unknown]
  - Product container issue [Unknown]
  - No adverse event [Unknown]

NARRATIVE: CASE EVENT DATE: 20250201
